FAERS Safety Report 11054159 (Version 1)
Quarter: 2015Q2

REPORT INFORMATION
  Report Type: Spontaneous
  Country: FR (occurrence: FR)
  Receive Date: 20150422
  Receipt Date: 20150422
  Transmission Date: 20150821
  Serious: Yes (Hospitalization)
  Sender: FDA-Public Use
  Company Number: FR-ROCHE-1566240

PATIENT
  Age: 47 Year
  Sex: Male

DRUGS (9)
  1. KARDEGIC [Concomitant]
     Active Substance: ASPIRIN LYSINE
  2. KERLONE [Concomitant]
     Active Substance: BETAXOLOL HYDROCHLORIDE
  3. PERINDOPRIL [Concomitant]
     Active Substance: PERINDOPRIL
  4. PROCORALAN [Concomitant]
     Active Substance: IVABRADINE
  5. VALIUM [Suspect]
     Active Substance: DIAZEPAM
     Indication: AGITATION
     Dosage: 70 MG OF VALIUM BETWEEN 07/APR AT 01:00 PM AND 08/APR AT 09:00 PM.
     Route: 042
     Dates: start: 20150407, end: 20150409
  6. ATORVASTATINE [Concomitant]
     Active Substance: ATORVASTATIN
  7. PANTOPRAZOLE [Concomitant]
     Active Substance: PANTOPRAZOLE SODIUM
  8. ALPRAZOLAM. [Concomitant]
     Active Substance: ALPRAZOLAM
  9. GARDENAL [Concomitant]
     Active Substance: PHENOBARBITAL

REACTIONS (1)
  - Pneumonia aspiration [Not Recovered/Not Resolved]

NARRATIVE: CASE EVENT DATE: 20150410
